FAERS Safety Report 8083627-8 (Version None)
Quarter: 2012Q1

REPORT INFORMATION
  Report Type: 
  Country: None (occurrence: None)
  Receive Date: 20120127
  Receipt Date: 20110310
  Transmission Date: 20120608
  Serious: No
  Sender: FDA-Public Use
  Company Number: US-ABBOTT-11P-163-0710662-00

PATIENT
  Age: 73 Year
  Sex: Female

DRUGS (2)
  1. MANY MEDICATIONS - PATIENT DID NOT WISH TO PROVIDED AT THIS TIME [Concomitant]
     Indication: PRODUCT USED FOR UNKNOWN INDICATION
  2. HUMIRA [Suspect]
     Indication: RHEUMATOID ARTHRITIS
     Dates: start: 20080101

REACTIONS (1)
  - RASH [None]
